FAERS Safety Report 8090449-0 (Version None)
Quarter: 2012Q1

REPORT INFORMATION
  Report Type: 
  Country: None (occurrence: None)
  Receive Date: 20120129
  Receipt Date: 20111120
  Transmission Date: 20120608
  Serious: No
  Sender: FDA-Public Use
  Company Number: US-ABBOTT-11P-163-0876000-00

PATIENT
  Age: 58 Year
  Sex: Female

DRUGS (20)
  1. HUMIRA [Suspect]
     Indication: CROHN'S DISEASE
     Dates: start: 20110801
  2. POMEGRANATE JUICE [Concomitant]
     Indication: PRODUCT USED FOR UNKNOWN INDICATION
     Route: 048
  3. D3 [Concomitant]
     Indication: PRODUCT USED FOR UNKNOWN INDICATION
  4. EXALON PATCH [Concomitant]
     Indication: MEMORY IMPAIRMENT
     Dosage: 4.6 MG - DAILY
  5. GREEN TEA [Concomitant]
     Indication: PRODUCT USED FOR UNKNOWN INDICATION
     Route: 048
  6. APRIZO [Concomitant]
     Indication: CROHN'S DISEASE
     Dosage: 0.375 GRAM - FOUR DAILY
  7. AMBIEN [Concomitant]
     Indication: INSOMNIA
     Dosage: 10 MG - AT BEDTIME
  8. ONE A DAY [Concomitant]
     Indication: VITAMIN SUPPLEMENTATION
  9. PREVACID [Concomitant]
     Indication: GASTRIC PH DECREASED
     Dosage: 30 MG - DAILY
  10. XANAX [Concomitant]
     Indication: ANXIETY
     Dosage: 1 MG - ONE, THREE TIMES DAILY AS NEEDED
  11. FOLIC ACID [Concomitant]
     Indication: PRODUCT USED FOR UNKNOWN INDICATION
  12. LAMICTAL [Concomitant]
     Indication: DEPRESSION
     Dosage: 100 MG - 1/2 TABLET TWICE DAILY
  13. IRON [Concomitant]
     Indication: PRODUCT USED FOR UNKNOWN INDICATION
  14. NAMENDA [Concomitant]
     Indication: MEMORY IMPAIRMENT
  15. ABILIFY [Concomitant]
     Indication: DEPRESSION
     Dosage: 5 MG - DAILY
  16. FISH OIL [Concomitant]
     Indication: PRODUCT USED FOR UNKNOWN INDICATION
  17. ENTOCORT EC [Concomitant]
     Indication: CROHN'S DISEASE
  18. VITAMIN B-12 [Concomitant]
     Indication: PRODUCT USED FOR UNKNOWN INDICATION
  19. VIT E [Concomitant]
     Indication: PRODUCT USED FOR UNKNOWN INDICATION
  20. COQ10 [Concomitant]
     Indication: PRODUCT USED FOR UNKNOWN INDICATION

REACTIONS (1)
  - DRUG INEFFECTIVE [None]
